FAERS Safety Report 18879245 (Version 1)
Quarter: 2021Q1

REPORT INFORMATION
  Report Type: Spontaneous
  Country: JP (occurrence: JP)
  Receive Date: 20210211
  Receipt Date: 20210211
  Transmission Date: 20210420
  Serious: Yes (Hospitalization)
  Sender: FDA-Public Use
  Company Number: JP-STRIDES ARCOLAB LIMITED-2021SP001819

PATIENT
  Age: 41 Year
  Sex: Male

DRUGS (4)
  1. ITRACONAZOLE. [Suspect]
     Active Substance: ITRACONAZOLE
     Indication: ASPERGILLUS INFECTION
     Dosage: UNK, ENCAPSULATED
     Route: 048
  2. ITRACONAZOLE. [Suspect]
     Active Substance: ITRACONAZOLE
     Dosage: 200 MILLIGRAM, PER DAY, INJECTION
     Route: 042
  3. AMPHOTERICIN B, LIPOSOME [Concomitant]
     Active Substance: AMPHOTERICIN B
     Indication: PULMONARY MYCOSIS
     Dosage: UNK
     Route: 065
  4. ITRACONAZOLE. [Suspect]
     Active Substance: ITRACONAZOLE
     Dosage: 150 MILLIGRAM, PER DAY
     Route: 065

REACTIONS (4)
  - Respiratory distress [Unknown]
  - Pneumonia [Unknown]
  - Anaemia [Unknown]
  - Cardiac failure congestive [Unknown]
